FAERS Safety Report 10252038 (Version 1)
Quarter: 2014Q2

REPORT INFORMATION
  Report Type: Spontaneous
  Country: FR (occurrence: FR)
  Receive Date: 20140623
  Receipt Date: 20140623
  Transmission Date: 20141212
  Serious: Yes (Hospitalization)
  Sender: FDA-Public Use
  Company Number: PHHY2014FR076263

PATIENT
  Age: 64 Year
  Sex: Female

DRUGS (2)
  1. ZOMETA [Suspect]
     Dosage: 6 ADMINISTRATIONS
     Dates: end: 201004
  2. LYTOS [Suspect]
     Dosage: UNK UKN, UNK
     Dates: start: 201005

REACTIONS (1)
  - Osteonecrosis [Unknown]
